FAERS Safety Report 5095792-5 (Version None)
Quarter: 2006Q3

REPORT INFORMATION
  Report Type: 
  Country: None (occurrence: None)
  Receive Date: 20060905
  Receipt Date: 20060831
  Transmission Date: 20061208
  Serious: Yes (Death)
  Sender: FDA-Public Use
  Company Number: JP-BRISTOL-MYERS SQUIBB COMPANY-13495718

PATIENT
  Age: 81 Year
  Sex: Female

DRUGS (4)
  1. TAXOL [Suspect]
     Indication: GASTRIC CANCER
     Route: 042
     Dates: start: 20060819, end: 20060819
  2. DEXAMETHASONE SODIUM PHOSPHATE [Concomitant]
     Route: 042
     Dates: start: 20060819, end: 20060819
  3. CHLORPHENIRAMINE MALEATE [Concomitant]
     Route: 048
     Dates: start: 20060819, end: 20060819
  4. RANITIDINE HCL [Concomitant]
     Route: 042
     Dates: start: 20060819, end: 20060819

REACTIONS (1)
  - ACUTE RESPIRATORY DISTRESS SYNDROME [None]
